FAERS Safety Report 11955291 (Version 2)
Quarter: 2016Q1

REPORT INFORMATION
  Report Type: Spontaneous
  Country: US (occurrence: US)
  Receive Date: 20160125
  Receipt Date: 20160202
  Transmission Date: 20160526
  Serious: No
  Sender: FDA-Public Use
  Company Number: US-ABBVIE-15K-163-1350508-00

PATIENT
  Age: 35 Year
  Sex: Male
  Weight: 104.42 kg

DRUGS (4)
  1. CLOBETASOL [Concomitant]
     Active Substance: CLOBETASOL
     Indication: PRODUCT USED FOR UNKNOWN INDICATION
  2. VIAGRA [Concomitant]
     Active Substance: SILDENAFIL CITRATE
     Indication: PRODUCT USED FOR UNKNOWN INDICATION
  3. HUMIRA [Suspect]
     Active Substance: ADALIMUMAB
     Indication: PSORIASIS
     Route: 065
     Dates: start: 20150203, end: 20150203
  4. HUMIRA [Suspect]
     Active Substance: ADALIMUMAB
     Route: 065
     Dates: start: 20150212

REACTIONS (7)
  - Lymph node pain [Recovered/Resolved]
  - Injection site urticaria [Recovering/Resolving]
  - Lymphadenopathy [Recovered/Resolved]
  - Injection site pruritus [Recovering/Resolving]
  - Injection site pruritus [Recovering/Resolving]
  - Drug administered at inappropriate site [Recovered/Resolved]
  - Injection site urticaria [Recovering/Resolving]

NARRATIVE: CASE EVENT DATE: 20150203
